FAERS Safety Report 19692372 (Version 2)
Quarter: 2021Q3

REPORT INFORMATION
  Report Type: Spontaneous
  Country: US (occurrence: US)
  Receive Date: 20210812
  Receipt Date: 20210901
  Transmission Date: 20211014
  Serious: Yes (Hospitalization, Other)
  Sender: FDA-Public Use
  Company Number: US-SA-2021SA263024

PATIENT
  Age: 54 Year
  Sex: Female

DRUGS (6)
  1. DAPTOMYCIN. [Interacting]
     Active Substance: DAPTOMYCIN
     Indication: SKIN BACTERIAL INFECTION
  2. LEFLUNOMIDE. [Suspect]
     Active Substance: LEFLUNOMIDE
     Indication: PSORIATIC ARTHROPATHY
     Dosage: UNK
  3. ATORVASTATIN [Interacting]
     Active Substance: ATORVASTATIN
     Indication: CORONARY ARTERY DISEASE
     Dosage: 80 MG, QD
  4. DAPTOMYCIN. [Interacting]
     Active Substance: DAPTOMYCIN
     Indication: ENTEROCOCCAL INFECTION
  5. DAPTOMYCIN. [Interacting]
     Active Substance: DAPTOMYCIN
     Indication: STAPHYLOCOCCAL INFECTION
     Dosage: 10 MG/KG(IDEAL BODY WEIGHT (750 MG DAILY))
  6. SULFAMETHOXAZOLE+TRIMETHOPRIM [Concomitant]
     Active Substance: SULFAMETHOXAZOLE\TRIMETHOPRIM
     Indication: SOFT TISSUE INFECTION
     Route: 048

REACTIONS (8)
  - Muscle injury [Recovering/Resolving]
  - Condition aggravated [Recovering/Resolving]
  - Tachycardia [Recovering/Resolving]
  - Fatigue [Recovering/Resolving]
  - Myalgia [Recovering/Resolving]
  - Rhabdomyolysis [Recovering/Resolving]
  - Asthenia [Recovering/Resolving]
  - Drug interaction [Recovering/Resolving]
